FAERS Safety Report 24410228 (Version 1)
Quarter: 2024Q4

REPORT INFORMATION
  Report Type: Spontaneous
  Country: US (occurrence: US)
  Receive Date: 20241008
  Receipt Date: 20241008
  Transmission Date: 20250114
  Serious: No
  Sender: BIOVITRUM
  Company Number: US-BIOVITRUM-2024-US-012747

PATIENT
  Sex: Female

DRUGS (1)
  1. DOPTELET [Suspect]
     Active Substance: AVATROMBOPAG MALEATE
     Indication: Product used for unknown indication

REACTIONS (3)
  - Platelet count abnormal [Unknown]
  - Blood magnesium decreased [Unknown]
  - Blood potassium decreased [Unknown]
